FAERS Safety Report 25894131 (Version 2)
Quarter: 2025Q4

REPORT INFORMATION
  Report Type: Spontaneous
  Country: EU (occurrence: EU)
  Receive Date: 20251008
  Receipt Date: 20251105
  Transmission Date: 20260117
  Serious: Yes (Life-Threatening)
  Sender: SANDOZ
  Company Number: EU-AstrazenecaRSG-2614-D926QC00001(Prod)000020

PATIENT
  Sex: Female
  Weight: 85 kg

DRUGS (26)
  1. CARBOPLATIN [Suspect]
     Active Substance: CARBOPLATIN
     Indication: Triple negative breast cancer
     Dosage: 1.5 AUC
     Route: 065
     Dates: start: 20250605, end: 20250821
  2. CYCLOPHOSPHAMIDE [Suspect]
     Active Substance: CYCLOPHOSPHAMIDE
     Indication: Triple negative breast cancer
     Dosage: 600 MG/M^2 600.0 MG/M2
     Route: 042
     Dates: start: 20250828, end: 20250828
  3. EPIRUBICIN [Suspect]
     Active Substance: EPIRUBICIN
     Indication: Triple negative breast cancer
     Dosage: 90 MG/M^2 90.0 MG/M2
     Route: 042
     Dates: start: 20250828, end: 20250828
  4. PACLITAXEL [Suspect]
     Active Substance: PACLITAXEL
     Indication: Triple negative breast cancer
     Dosage: 80 MG/M^2 80 MG/M2
     Route: 065
     Dates: start: 20250724, end: 20250724
  5. PACLITAXEL [Suspect]
     Active Substance: PACLITAXEL
     Dosage: 80 MG/M^2 80 MG/M2
     Route: 065
     Dates: start: 20250605, end: 20250605
  6. PACLITAXEL [Suspect]
     Active Substance: PACLITAXEL
     Dosage: 80 MG/M^2 80 MG/M2
     Route: 065
     Dates: start: 20250612, end: 20250612
  7. PACLITAXEL [Suspect]
     Active Substance: PACLITAXEL
     Dosage: 80 MG/M^2 80 MG/M2
     Route: 065
     Dates: start: 20250619, end: 20250619
  8. PACLITAXEL [Suspect]
     Active Substance: PACLITAXEL
     Dosage: 80 MG/M^2 80 MG/M2
     Route: 065
     Dates: start: 20250626, end: 20250626
  9. PACLITAXEL [Suspect]
     Active Substance: PACLITAXEL
     Dosage: 80 MG/M^2 80 MG/M2
     Route: 065
     Dates: start: 20250703, end: 20250703
  10. PACLITAXEL [Suspect]
     Active Substance: PACLITAXEL
     Dosage: 80 MG/M^2 80 MG/M2
     Route: 065
     Dates: start: 20250710, end: 20250710
  11. PACLITAXEL [Suspect]
     Active Substance: PACLITAXEL
     Dosage: 80 MG/M^2 80 MG/M2
     Route: 065
     Dates: start: 20250717, end: 20250717
  12. PACLITAXEL [Suspect]
     Active Substance: PACLITAXEL
     Dosage: 80 MG/M^2 80 MG/M2
     Route: 065
     Dates: start: 20250731, end: 20250731
  13. PACLITAXEL [Suspect]
     Active Substance: PACLITAXEL
     Dosage: 80 MG/M^2 80 MG/M2
     Route: 065
     Dates: start: 20250807, end: 20250807
  14. PACLITAXEL [Suspect]
     Active Substance: PACLITAXEL
     Dosage: 80 MG/M^2 80 MG/M2
     Route: 065
     Dates: start: 20250814, end: 20250814
  15. PACLITAXEL [Suspect]
     Active Substance: PACLITAXEL
     Dosage: 80 MG/M^2 80 MG/M2
     Route: 065
     Dates: start: 20250821, end: 20250821
  16. PEMBROLIZUMAB [Suspect]
     Active Substance: PEMBROLIZUMAB
     Indication: Triple negative breast cancer
     Dosage: 200 MG 200 MG
     Route: 065
     Dates: start: 20250717, end: 20250717
  17. PEMBROLIZUMAB [Suspect]
     Active Substance: PEMBROLIZUMAB
     Dosage: 200 MG 200 MG
     Route: 065
     Dates: start: 20250605, end: 20250605
  18. PEMBROLIZUMAB [Suspect]
     Active Substance: PEMBROLIZUMAB
     Dosage: 200 MG 200 MG
     Route: 065
     Dates: start: 20250626, end: 20250626
  19. PEMBROLIZUMAB [Suspect]
     Active Substance: PEMBROLIZUMAB
     Dosage: 200 MG 200 MG
     Route: 065
     Dates: start: 20250807, end: 20250807
  20. PEMBROLIZUMAB [Suspect]
     Active Substance: PEMBROLIZUMAB
     Dosage: 200 MG 200 MG
     Route: 065
     Dates: start: 20250828, end: 20250828
  21. Akynzeo [Concomitant]
     Indication: Chemotherapy side effect prophylaxis
     Dosage: 300 MG 300 MG, AS NEEDED (PRN)
     Route: 048
     Dates: start: 20250828
  22. CEFUROXIME [Concomitant]
     Active Substance: CEFUROXIME
     Indication: Nasopharyngitis
     Dosage: 500 MG 500 MG, BID
     Route: 048
     Dates: start: 20250910
  23. DEXAMETHASONE [Concomitant]
     Active Substance: DEXAMETHASONE
     Dosage: 12 MG 12 MG, AS NEEDED (PRN)
     Route: 048
     Dates: start: 20250828
  24. DEXAMETHASONE [Concomitant]
     Active Substance: DEXAMETHASONE
     Indication: Chemotherapy side effect prophylaxis
     Dosage: 8 MG 8 MG, AS NEEDED (PRN)
     Route: 048
     Dates: start: 20250606, end: 20250822
  25. GRANISETRON [Concomitant]
     Active Substance: GRANISETRON
     Indication: Chemotherapy side effect prophylaxis
     Dosage: 2 MG 2 MG, AS NEEDED (PRN)
     Route: 048
     Dates: start: 20250605, end: 20250822
  26. DIETARY SUPPLEMENT\HERBALS [Concomitant]
     Active Substance: DIETARY SUPPLEMENT\HERBALS
     Indication: Nasopharyngitis
     Dosage: UNK UNK, AS NEEDED (PRN)
     Route: 048
     Dates: start: 20250603, end: 20250619

REACTIONS (1)
  - Neutropenia [Recovered/Resolved]

NARRATIVE: CASE EVENT DATE: 20250909
